FAERS Safety Report 6065693-4 (Version None)
Quarter: 2009Q1

REPORT INFORMATION
  Report Type: 
  Country: None (occurrence: None)
  Receive Date: 20090202
  Receipt Date: 20090116
  Transmission Date: 20090719
  Serious: Yes (Hospitalization)
  Sender: FDA-Public Use
  Company Number: 2008092789

PATIENT
  Age: 82 Year
  Sex: Female
  Weight: 98 kg

DRUGS (14)
  1. DALTEPARIN SODIUM [Suspect]
     Indication: ISCHAEMIA
     Dosage: SUBCUTANEOUS
     Route: 058
     Dates: start: 20080926, end: 20081125
  2. DALTEPARIN SODIUM [Suspect]
     Indication: SKIN ULCER
     Dosage: SUBCUTANEOUS
     Route: 058
     Dates: start: 20080926, end: 20081125
  3. OMEPRAZOLE [Concomitant]
  4. ACETYLSALICYLIC ACID SRT [Concomitant]
  5. BEHEPAN (CYANOCOBALAMIN) [Concomitant]
  6. ISOSORBIDE MONONITRATE [Concomitant]
  7. FUROSEMIDE (FUROSEMIDE) [Concomitant]
  8. METOPROLOL TARTRATE [Concomitant]
  9. AMLODIPINE [Concomitant]
  10. LOSARTAN POTASSIUM [Concomitant]
  11. CITALOPRAM HYDROBROMIDE [Concomitant]
  12. INSULIN ASPART (INSULIN ASPART) [Concomitant]
  13. GLYCERYLNITRAT (GLYCERYL TRINITRATE) [Concomitant]
  14. SMIVASTATIN (SIMVASTATIN) [Concomitant]

REACTIONS (2)
  - GOUTY ARTHRITIS [None]
  - HYPERURICAEMIA [None]
